FAERS Safety Report 12340692 (Version 1)
Quarter: 2016Q2

REPORT INFORMATION
  Report Type: Spontaneous
  Country: US (occurrence: None)
  Receive Date: 20160505
  Receipt Date: 20160505
  Transmission Date: 20160815
  Serious: Yes (Other)
  Sender: FDA-Public Use
  Company Number: None

PATIENT
  Age: 56 Year
  Sex: Male
  Weight: 100.7 kg

DRUGS (6)
  1. FINASTERIDE. [Suspect]
     Active Substance: FINASTERIDE
     Indication: ALOPECIA
     Route: 048
     Dates: start: 20160405, end: 20160424
  2. COD LIVER OIL [Concomitant]
     Active Substance: COD LIVER OIL
  3. OMNI SOLGAR MULTI VITAMIN [Concomitant]
  4. ASPRIN [Concomitant]
     Active Substance: ASPIRIN
  5. RESVERATROL [Concomitant]
     Active Substance: RESVERATROL
  6. PHOSPHATIDYLSERINE [Concomitant]

REACTIONS (6)
  - Suicidal ideation [None]
  - Anxiety [None]
  - Memory impairment [None]
  - Depression [None]
  - Loss of employment [None]
  - Disturbance in attention [None]

NARRATIVE: CASE EVENT DATE: 20160420
